FAERS Safety Report 22311980 (Version 1)
Quarter: 2023Q2

REPORT INFORMATION
  Report Type: Report from Study
  Country: US (occurrence: None)
  Receive Date: 20230512
  Receipt Date: 20230512
  Transmission Date: 20230722
  Serious: Yes (Hospitalization)
  Sender: FDA-Public Use
  Company Number: US-ROCHE-3347872

PATIENT
  Age: 64 Year
  Sex: Female
  Weight: 67.5 kg

DRUGS (3)
  1. ATEZOLIZUMAB [Suspect]
     Active Substance: ATEZOLIZUMAB
     Indication: Bile duct cancer
     Route: 065
     Dates: start: 20230418
  2. COBIMETINIB [Suspect]
     Active Substance: COBIMETINIB
     Indication: Bile duct cancer
     Route: 065
     Dates: start: 20230418
  3. VARLILUMAB [Suspect]
     Active Substance: VARLILUMAB
     Indication: Bile duct cancer
     Route: 065
     Dates: start: 20230421

REACTIONS (1)
  - Pyrexia [Recovered/Resolved with Sequelae]

NARRATIVE: CASE EVENT DATE: 20230427
